FAERS Safety Report 5059360-3 (Version None)
Quarter: 2006Q3

REPORT INFORMATION
  Report Type: 
  Country: None (occurrence: None)
  Receive Date: 20060724
  Receipt Date: 20060712
  Transmission Date: 20061208
  Serious: Yes (Hospitalization)
  Sender: FDA-Public Use
  Company Number: JP-JNJFOC-20060702910

PATIENT
  Age: 22 Year
  Sex: Female

DRUGS (4)
  1. REMICADE [Suspect]
     Route: 042
  2. REMICADE [Suspect]
     Indication: JUVENILE ARTHRITIS
     Route: 042
  3. STEROID [Concomitant]
     Indication: JUVENILE ARTHRITIS
  4. METHOTREXATE SODIUM [Concomitant]
     Indication: JUVENILE ARTHRITIS

REACTIONS (1)
  - LISTERIA ENCEPHALITIS [None]
